FAERS Safety Report 26028819 (Version 1)
Quarter: 2025Q4

REPORT INFORMATION
  Report Type: Spontaneous
  Country: BR (occurrence: BR)
  Receive Date: 20251112
  Receipt Date: 20251112
  Transmission Date: 20260118
  Serious: Yes (Hospitalization)
  Sender: BAXTER
  Company Number: BR-BAXTER-2025BAX023872

PATIENT
  Age: 30 Year
  Weight: 109 kg

DRUGS (14)
  1. PROPOFOL [Suspect]
     Active Substance: PROPOFOL
     Indication: Anaesthesia procedure
     Dosage: UNK
     Route: 065
     Dates: start: 20251030
  2. REMIFENTANIL [Concomitant]
     Active Substance: REMIFENTANIL
     Dosage: UNK
     Route: 065
     Dates: start: 20251030
  3. MIDAZOLAM [Concomitant]
     Active Substance: MIDAZOLAM
     Dosage: UNK
     Route: 065
     Dates: start: 20251030
  4. ROCURONIUM [Concomitant]
     Active Substance: ROCURONIUM BROMIDE
     Dosage: UNK
     Route: 065
     Dates: start: 20251030
  5. ROPIVACAINE [Concomitant]
     Active Substance: ROPIVACAINE
     Dosage: UNK
     Route: 065
     Dates: start: 20251030
  6. MAGNESIUM SULFATE [Concomitant]
     Active Substance: MAGNESIUM SULFATE
     Dosage: UNK
     Route: 065
     Dates: start: 20251030
  7. AMPICILLIN SODIUM\SULBACTAM SODIUM [Concomitant]
     Active Substance: AMPICILLIN SODIUM\SULBACTAM SODIUM
     Dosage: UNK
     Route: 065
     Dates: start: 20251030
  8. GENTAMICIN [Concomitant]
     Active Substance: GENTAMICIN
     Dosage: UNK
     Route: 065
     Dates: start: 20251030
  9. DEXAMETHASONE [Concomitant]
     Active Substance: DEXAMETHASONE
     Dosage: UNK
     Route: 065
     Dates: start: 20251030
  10. PANTOPRAZOLE [Concomitant]
     Active Substance: PANTOPRAZOLE
     Dosage: UNK
     Route: 065
     Dates: start: 20251030
  11. TRANEXAMIC ACID [Concomitant]
     Active Substance: TRANEXAMIC ACID
     Dosage: UNK
     Route: 065
     Dates: start: 20251030
  12. DIPYRONE [Concomitant]
     Active Substance: DIPYRONE
     Dosage: UNK
     Route: 065
     Dates: start: 20251030
  13. ONDANSETRON [Concomitant]
     Active Substance: ONDANSETRON
     Dosage: UNK
     Route: 065
     Dates: start: 20251030
  14. KETOROLAC [Concomitant]
     Active Substance: KETOROLAC TROMETHAMINE
     Dosage: UNK
     Route: 065
     Dates: start: 20251030

REACTIONS (1)
  - Pain in extremity [Recovering/Resolving]

NARRATIVE: CASE EVENT DATE: 20251030
